FAERS Safety Report 9794621 (Version 1)
Quarter: 2014Q1

REPORT INFORMATION
  Report Type: Report from Study
  Country: CA (occurrence: CA)
  Receive Date: 20140102
  Receipt Date: 20140102
  Transmission Date: 20141002
  Serious: Yes (Other)
  Sender: FDA-Public Use
  Company Number: CA-ABBVIE-14P-028-1185244-00

PATIENT
  Sex: Female
  Weight: 47.22 kg

DRUGS (3)
  1. HUMIRA [Suspect]
     Indication: CROHN^S DISEASE
     Dosage: LOADING DOSE
     Route: 058
     Dates: start: 20131108, end: 20131108
  2. HUMIRA [Suspect]
     Dosage: LOADING DOSE AT WEEK 2
     Route: 058
     Dates: start: 20131123
  3. ALESSE [Concomitant]
     Indication: CONTRACEPTION
     Route: 048

REACTIONS (2)
  - Intestinal stenosis [Not Recovered/Not Resolved]
  - Intestinal obstruction [Not Recovered/Not Resolved]
